FAERS Safety Report 13803231 (Version 1)
Quarter: 2017Q3

REPORT INFORMATION
  Report Type: Spontaneous
  Country: US (occurrence: US)
  Receive Date: 20170728
  Receipt Date: 20170728
  Transmission Date: 20171127
  Serious: No
  Sender: FDA-Public Use
  Company Number: US-SUN PHARMACEUTICAL INDUSTRIES LTD-2017US-139600

PATIENT
  Age: 47 Year
  Sex: Male

DRUGS (1)
  1. TESTOSTERONE. [Suspect]
     Active Substance: TESTOSTERONE
     Indication: BLOOD TESTOSTERONE DECREASED
     Dosage: 2 ML EVERY 2 WEEKS
     Route: 051
     Dates: start: 20170423

REACTIONS (8)
  - Insomnia [Recovering/Resolving]
  - Product substitution issue [Unknown]
  - Hypoaesthesia [Recovering/Resolving]
  - Chest discomfort [Recovering/Resolving]
  - Paraesthesia [Recovering/Resolving]
  - Cough [Recovering/Resolving]
  - Feeling abnormal [Recovering/Resolving]
  - Headache [Recovering/Resolving]

NARRATIVE: CASE EVENT DATE: 201704
